FAERS Safety Report 5880528-8 (Version None)
Quarter: 2008Q3

REPORT INFORMATION
  Report Type: 
  Country: None (occurrence: None)
  Receive Date: 20080912
  Receipt Date: 20080625
  Transmission Date: 20090109
  Serious: No
  Sender: FDA-Public Use
  Company Number: US-ABBOTT-08P-163-0453794-00

PATIENT
  Sex: Female
  Weight: 68.554 kg

DRUGS (15)
  1. HUMIRA [Suspect]
     Indication: RHEUMATOID ARTHRITIS
     Route: 050
     Dates: start: 20080528
  2. VICODIN [Concomitant]
     Indication: PAIN
  3. ACETAMINOPHEN W/ CODEINE [Concomitant]
     Indication: PAIN
  4. PROPACET 100 [Concomitant]
     Indication: PAIN
  5. NERVE PILL [Concomitant]
     Indication: PAIN
     Dosage: AT BEDTIME
  6. CALCIUM WITH VITAMIN D [Concomitant]
     Indication: DRUG USE FOR UNKNOWN INDICATION
  7. ERGOCALCIFEROL [Concomitant]
     Indication: DRUG USE FOR UNKNOWN INDICATION
  8. FUROSEMIDE [Concomitant]
     Indication: OEDEMA PERIPHERAL
     Route: 048
  9. ACETAMINOPHEN [Concomitant]
     Indication: PAIN
  10. PANTOPRAZOLE [Concomitant]
     Indication: GASTRIC DISORDER
     Route: 048
  11. PREDNISONE TAB [Concomitant]
     Indication: RHEUMATOID ARTHRITIS
     Route: 048
     Dates: start: 19830101
  12. SHOT FOR ANEMIA [Concomitant]
     Indication: ANAEMIA
     Dosage: AS INDICATED PER BLOOD TESTS
     Route: 050
  13. CITALOPRAM HYDROBROMIDE [Concomitant]
     Indication: DEPRESSION
     Route: 048
  14. QUETIAPINE [Concomitant]
     Dosage: ONE EVERY HS
     Route: 048
  15. DILTIAZEM HCL [Concomitant]
     Route: 048
     Dates: start: 20071001

REACTIONS (3)
  - HYPOAESTHESIA [None]
  - PARAESTHESIA [None]
  - UNDERDOSE [None]
